FAERS Safety Report 19505596 (Version 1)
Quarter: 2021Q3

REPORT INFORMATION
  Report Type: Spontaneous
  Country: US (occurrence: US)
  Receive Date: 20210707
  Receipt Date: 20210707
  Transmission Date: 20211014
  Serious: No
  Sender: FDA-Public Use
  Company Number: None

PATIENT
  Age: 31 Year
  Sex: Female

DRUGS (1)
  1. HYDROXYPROGEST SDV 250MG/ML [Suspect]
     Active Substance: HYDROXYPROGESTERONE CAPROATE
     Indication: HIGH RISK PREGNANCY
     Dosage: ?          OTHER FREQUENCY:OTHER;?
     Route: 030
     Dates: start: 202103

REACTIONS (1)
  - Product dispensing error [None]

NARRATIVE: CASE EVENT DATE: 20210430
